FAERS Safety Report 9974394 (Version 2)
Quarter: 2014Q1

REPORT INFORMATION
  Report Type: Spontaneous
  Country: US (occurrence: US)
  Receive Date: 20140306
  Receipt Date: 20140317
  Transmission Date: 20141002
  Serious: No
  Sender: FDA-Public Use
  Company Number: US-009507513-1403USA000788

PATIENT
  Age: 72 Year
  Sex: Female

DRUGS (27)
  1. OXYTROL FOR WOMEN [Suspect]
     Indication: HYPERTONIC BLADDER
     Dosage: UNK, UNKNOWN
     Route: 062
     Dates: start: 20140118
  2. ESTRADIOL [Concomitant]
     Indication: PRODUCT USED FOR UNKNOWN INDICATION
     Dosage: 0.5 MG, UNKNOWN
  3. METFORMIN [Concomitant]
     Indication: TYPE 2 DIABETES MELLITUS
     Dosage: UNK, UNKNOWN
  4. JANUVIA [Concomitant]
     Indication: TYPE 2 DIABETES MELLITUS
     Dosage: UNK, UNKNOWN
  5. PROPRANOLOL HYDROCHLORIDE [Concomitant]
     Indication: ESSENTIAL TREMOR
     Dosage: UNK, UNKNOWN
  6. PROPRANOLOL HYDROCHLORIDE [Concomitant]
     Indication: HYPERTENSION
  7. LOSARTAN POTASSIUM [Concomitant]
     Indication: HYPERTENSION
     Dosage: UNK, UNKNOWN
  8. ASPIRIN (+) BUTALBITAL [Concomitant]
     Indication: CLUSTER HEADACHE
     Dosage: UNK, UNKNOWN
  9. PROTOPIC [Concomitant]
     Indication: VULVOVAGINAL PRURITUS
     Dosage: UNK, UNKNOWN
  10. CLOBETASOL PROPIONATE [Concomitant]
     Indication: VULVOVAGINAL PRURITUS
     Dosage: UNK, UNKNOWN
  11. OMEPRAZOLE [Concomitant]
     Indication: HIATUS HERNIA
     Dosage: UNK, UNKNOWN
  12. LOVASTATIN [Concomitant]
     Indication: BLOOD CHOLESTEROL ABNORMAL
     Dosage: 20 MG, QOD
  13. FLUTICASONE [Concomitant]
     Indication: RHINORRHOEA
     Dosage: 50 MICROGRAM, QAM
  14. MUCINEX [Concomitant]
     Indication: INCREASED UPPER AIRWAY SECRETION
     Dosage: 600 MG, UNKNOWN
  15. MUCINEX [Concomitant]
     Indication: RESPIRATORY TRACT CONGESTION
  16. FLUCONAZOLE [Concomitant]
     Indication: PRODUCT USED FOR UNKNOWN INDICATION
     Dosage: 200 MG, QM
  17. VITAMINS (UNSPECIFIED) [Concomitant]
     Indication: PRODUCT USED FOR UNKNOWN INDICATION
     Dosage: UNK, QD
  18. CHOLECALCIFEROL [Concomitant]
     Indication: PRODUCT USED FOR UNKNOWN INDICATION
     Dosage: 2000 IU, QD
  19. OMEGA-3 MARINE TRIGLYCERIDES [Concomitant]
     Indication: PRODUCT USED FOR UNKNOWN INDICATION
     Dosage: 1000 MG, QD
  20. CYANOCOBALAMIN [Concomitant]
     Indication: PRODUCT USED FOR UNKNOWN INDICATION
     Dosage: UNK, QD
  21. BAYER ASPIRIN [Concomitant]
     Indication: PRODUCT USED FOR UNKNOWN INDICATION
     Dosage: UNK, UNKNOWN
  22. CENTRUM SILVER [Concomitant]
     Indication: PRODUCT USED FOR UNKNOWN INDICATION
     Dosage: UNK, UNKNOWN
  23. GLUCOSAMINE [Concomitant]
     Indication: ARTHRITIS
     Dosage: 1500 MG, QD
  24. CHONDROITIN [Concomitant]
     Indication: ARTHRITIS
     Dosage: 1200 MG, QD
  25. HYLANDS LEG CRAMPS [Concomitant]
     Indication: MUSCLE SPASMS
     Dosage: UNK, UNKNOWN
  26. FEOSOL [Concomitant]
     Indication: PRODUCT USED FOR UNKNOWN INDICATION
     Dosage: UNK, QD
  27. CALCIUM D3 [Concomitant]
     Indication: PRODUCT USED FOR UNKNOWN INDICATION
     Dosage: UNK, QPM

REACTIONS (3)
  - Incorrect drug administration duration [Unknown]
  - Off label use [Unknown]
  - Drug effect decreased [Unknown]
